FAERS Safety Report 15560345 (Version 2)
Quarter: 2019Q1

REPORT INFORMATION
  Report Type: Spontaneous
  Country: US (occurrence: US)
  Receive Date: 20181029
  Receipt Date: 20190118
  Transmission Date: 20190417
  Serious: No
  Sender: FDA-Public Use
  Company Number: US-JNJFOC-20181024153

PATIENT
  Age: 34 Year
  Sex: Male
  Weight: 122.47 kg

DRUGS (2)
  1. DITROPAN XL [Suspect]
     Active Substance: OXYBUTYNIN CHLORIDE
     Indication: NEUROGENIC BLADDER
     Dosage: 2 DOSES IN MORNING AND 1 DOSE AT NIGHT
     Route: 048
     Dates: end: 201808
  2. DITROPAN XL [Suspect]
     Active Substance: OXYBUTYNIN CHLORIDE
     Indication: NEUROGENIC BLADDER
     Dosage: 3 DOSES IN MORNING AND 2 DOSES IN EVENING
     Route: 048
     Dates: start: 201808

REACTIONS (1)
  - Product availability issue [Unknown]

NARRATIVE: CASE EVENT DATE: 201808
